FAERS Safety Report 9300326 (Version 2)
Quarter: 2013Q2

REPORT INFORMATION
  Report Type: Report from Study
  Country: CH (occurrence: CH)
  Receive Date: 20130521
  Receipt Date: 20130603
  Transmission Date: 20140414
  Serious: Yes (Hospitalization, Other)
  Sender: FDA-Public Use
  Company Number: CH-VERTEX PHARMACEUTICALS INC-2013-006217

PATIENT
  Age: 61 Year
  Sex: Female

DRUGS (6)
  1. INCIVO [Suspect]
     Indication: CHRONIC HEPATITIS C
     Dosage: FOR 12 WEEKS
     Route: 065
     Dates: start: 201203
  2. PEGINTERFERON ALFA-2A [Concomitant]
     Indication: PRODUCT USED FOR UNKNOWN INDICATION
     Dosage: 180 ?G, QW
     Route: 065
  3. RIBAVIRIN [Concomitant]
     Indication: PRODUCT USED FOR UNKNOWN INDICATION
     Dosage: 1200 MG, QD
     Route: 065
  4. INDERAL LA [Concomitant]
     Indication: HYPERTONIA
  5. ALDACTONE [Concomitant]
     Indication: HYPERTONIA
  6. TORASEMID [Concomitant]
     Indication: HYPERTONIA

REACTIONS (6)
  - Pancreatitis [Recovered/Resolved]
  - Anaemia [Unknown]
  - Thrombocytopenia [Unknown]
  - Abdominal pain [Recovered/Resolved]
  - Panniculitis [Unknown]
  - Vomiting [Recovered/Resolved]
